FAERS Safety Report 23416696 (Version 1)
Quarter: 2024Q1

REPORT INFORMATION
  Report Type: Spontaneous
  Country: US (occurrence: None)
  Receive Date: 20240117
  Receipt Date: 20240117
  Transmission Date: 20240410
  Serious: Yes (Life-Threatening, Hospitalization, Other)
  Sender: FDA-Public Use
  Company Number: None

PATIENT
  Age: 73 Year
  Sex: Male
  Weight: 109 kg

DRUGS (1)
  1. TENECTEPLASE [Suspect]
     Active Substance: TENECTEPLASE
     Indication: Ischaemic stroke
     Dates: start: 20240108

REACTIONS (1)
  - Lip swelling [None]

NARRATIVE: CASE EVENT DATE: 20240108
